FAERS Safety Report 7364780-8 (Version None)
Quarter: 2011Q1

REPORT INFORMATION
  Report Type: 
  Country: None (occurrence: None)
  Receive Date: 20110225
  Receipt Date: 20101201
  Transmission Date: 20110831
  Serious: No
  Sender: FDA-Public Use
  Company Number: 318495

PATIENT
  Age: 56 Year
  Sex: Female

DRUGS (3)
  1. VICTOZA [Suspect]
     Indication: TYPE 2 DIABETES MELLITUS
     Dosage: 0.6 MG, QD, SUBCUTANEOUS
     Route: 058
  2. GLUCOFAGE (METFORMIN HYDROCHLORIDE) [Concomitant]
  3. AMARYL [Concomitant]

REACTIONS (4)
  - VOMITING [None]
  - DECREASED APPETITE [None]
  - NAUSEA [None]
  - HEADACHE [None]
